FAERS Safety Report 4658868-X (Version None)
Quarter: 2005Q2

REPORT INFORMATION
  Report Type: 
  Country: None (occurrence: None)
  Receive Date: 20050509
  Receipt Date: 20050305
  Transmission Date: 20051028
  Serious: Yes (Life-Threatening, Other)
  Sender: FDA-Public Use
  Company Number: WAES 0504KOR00016

PATIENT
  Age: 26 Year
  Sex: Male

DRUGS (6)
  1. CANCIDAS [Suspect]
     Indication: PNEUMONIA
     Dosage: SEE IMAGE
     Route: 042
     Dates: start: 20050329, end: 20050329
  2. CANCIDAS [Suspect]
     Indication: PNEUMONIA
     Dosage: SEE IMAGE
     Route: 042
     Dates: start: 20050330, end: 20050331
  3. IMIPENEM [Suspect]
     Indication: PNEUMONIA
     Dosage: 500 MG;QID, IV
     Route: 042
     Dates: start: 20050326, end: 20050331
  4. SYNERCID [Suspect]
     Indication: CATHETER RELATED INFECTION
     Dosage: 500 MG/TID, IV
     Route: 042
     Dates: start: 20050328, end: 20050331
  5. ISEPAMICIN  SULFATE [Concomitant]
  6. ITRACONAZOLE [Concomitant]

REACTIONS (6)
  - BLOOD CALCIUM ABNORMAL [None]
  - BLOOD CREATINE PHOSPHOKINASE ABNORMAL [None]
  - CONVULSION [None]
  - HYPERTENSION [None]
  - HYPOKALAEMIA [None]
  - VENTRICULAR TACHYCARDIA [None]
